FAERS Safety Report 21053735 (Version 1)
Quarter: 2022Q3

REPORT INFORMATION
  Report Type: Spontaneous
  Country: US (occurrence: US)
  Receive Date: 20220707
  Receipt Date: 20220707
  Transmission Date: 20221026
  Serious: Yes (Death, Hospitalization, Other)
  Sender: FDA-Public Use
  Company Number: US-AMGEN-USASP2022113112

PATIENT
  Age: 63 Year
  Sex: Male

DRUGS (3)
  1. BEVACIZUMAB [Suspect]
     Active Substance: BEVACIZUMAB
     Indication: Ovarian cancer stage III
     Dosage: UNK, Q3WK
     Route: 065
  2. CARBOPLATIN [Concomitant]
     Active Substance: CARBOPLATIN
  3. PACLITAXEL [Concomitant]
     Active Substance: PACLITAXEL

REACTIONS (14)
  - Death [Fatal]
  - Fistula of small intestine [Unknown]
  - Impaired healing [Unknown]
  - Shock haemorrhagic [Unknown]
  - Enteritis necroticans [Unknown]
  - Ulcerative duodenitis [Unknown]
  - Septic shock [Unknown]
  - Systemic candida [Unknown]
  - Escherichia bacteraemia [Unknown]
  - General physical health deterioration [Unknown]
  - Haematochezia [Unknown]
  - Haematemesis [Unknown]
  - Haemoglobin decreased [Unknown]
  - Asthenia [Unknown]
